FAERS Safety Report 4532061-3 (Version None)
Quarter: 2004Q4

REPORT INFORMATION
  Report Type: 
  Country: None (occurrence: None)
  Receive Date: 20041217
  Receipt Date: 20041209
  Transmission Date: 20050328
  Serious: Yes (Hospitalization)
  Sender: FDA-Public Use
  Company Number: 2004UW25137

PATIENT
  Age: 58 Year
  Sex: Male
  Weight: 99.79 kg

DRUGS (4)
  1. CRESTOR [Suspect]
     Indication: BLOOD CHOLESTEROL INCREASED
     Dosage: 10 MG QD PO
     Route: 048
     Dates: start: 20041001, end: 20041119
  2. NORVASC [Concomitant]
  3. ASPIRI [Concomitant]
  4. THYROID TAB [Concomitant]

REACTIONS (5)
  - AMNESIA [None]
  - ERYTHEMA [None]
  - HYPERTENSION [None]
  - INCOHERENT [None]
  - TRANSIENT ISCHAEMIC ATTACK [None]
